FAERS Safety Report 11384437 (Version 1)
Quarter: 2015Q3

REPORT INFORMATION
  Report Type: Spontaneous
  Country: US (occurrence: US)
  Receive Date: 20150811
  Receipt Date: 20150811
  Transmission Date: 20151125
  Serious: No
  Sender: FDA-Public Use
  Company Number: US-ELI_LILLY_AND_COMPANY-US201104005858

PATIENT
  Age: 43 Year
  Sex: Female
  Weight: 67.12 kg

DRUGS (3)
  1. REMODULIN [Concomitant]
     Active Substance: TREPROSTINIL
     Dosage: 1 DF, UNK
  2. TRACLEER [Concomitant]
     Active Substance: BOSENTAN
     Dosage: 1 DF, UNK
  3. ADCIRCA [Suspect]
     Active Substance: TADALAFIL
     Dosage: 1 DF, UNK

REACTIONS (1)
  - Dizziness [Unknown]
